FAERS Safety Report 9663769 (Version 2)
Quarter: 2013Q4

REPORT INFORMATION
  Report Type: Spontaneous
  Country: JP (occurrence: JP)
  Receive Date: 20131101
  Receipt Date: 20131118
  Transmission Date: 20140711
  Serious: Yes (Other)
  Sender: FDA-Public Use
  Company Number: PHHY2013JP123569

PATIENT
  Sex: Female

DRUGS (2)
  1. FEMARA [Suspect]
     Indication: BREAST CANCER
     Dosage: 2.5 MG, DAILY
     Route: 048
  2. VITAMIN E [Concomitant]
     Dosage: UNK UKN, UNK

REACTIONS (2)
  - Acute promyelocytic leukaemia [Unknown]
  - Second primary malignancy [Unknown]
